FAERS Safety Report 6162160-4 (Version None)
Quarter: 2009Q2

REPORT INFORMATION
  Report Type: 
  Country: None (occurrence: None)
  Receive Date: 20090421
  Receipt Date: 20090414
  Transmission Date: 20091009
  Serious: Yes (Death, Hospitalization)
  Sender: FDA-Public Use
  Company Number: SG-ABBOTT-09P-141-0565340-00

PATIENT
  Age: 67 Year
  Sex: Male

DRUGS (8)
  1. KLACID [Suspect]
     Indication: DRUG USE FOR UNKNOWN INDICATION
     Dates: start: 20081101, end: 20081114
  2. AMOXICILLIN [Suspect]
     Indication: DRUG USE FOR UNKNOWN INDICATION
     Dates: start: 20081101, end: 20081114
  3. BISOPROLOL [Concomitant]
     Indication: MYOCARDIAL ISCHAEMIA
  4. ENALAPRIL [Concomitant]
     Indication: HYPERTENSION
  5. LOSEC [Concomitant]
     Indication: DRUG USE FOR UNKNOWN INDICATION
     Dates: start: 20081101, end: 20081114
  6. LOVASTATIN [Concomitant]
     Indication: HYPERLIPIDAEMIA
  7. TICLID [Concomitant]
     Indication: MYOCARDIAL ISCHAEMIA
  8. ISOSORBIDE DINITRATE [Concomitant]
     Indication: DRUG USE FOR UNKNOWN INDICATION

REACTIONS (1)
  - TOXIC EPIDERMAL NECROLYSIS [None]
